FAERS Safety Report 17560474 (Version 1)
Quarter: 2020Q1

REPORT INFORMATION
  Report Type: Spontaneous
  Country: US (occurrence: US)
  Receive Date: 20200311
  Receipt Date: 20200311
  Transmission Date: 20200409
  Serious: Yes (Life-Threatening, Hospitalization, Other)
  Sender: FDA-Public Use
  Company Number: None

PATIENT
  Age: 69 Year
  Sex: Male
  Weight: 84.37 kg

DRUGS (1)
  1. DICLOFENAC [Suspect]
     Active Substance: DICLOFENAC
     Indication: EPICONDYLITIS
     Dosage: ?          QUANTITY:GEL RUBBED ON ARMS;?
     Route: 061
     Dates: start: 20200109, end: 20200112

REACTIONS (5)
  - Weight decreased [None]
  - Pain in extremity [None]
  - Fatigue [None]
  - Pyrexia [None]
  - Muscular weakness [None]

NARRATIVE: CASE EVENT DATE: 20200119
